FAERS Safety Report 14384560 (Version 1)
Quarter: 2018Q1

REPORT INFORMATION
  Report Type: Spontaneous
  Country: DE (occurrence: DE)
  Receive Date: 20180115
  Receipt Date: 20180115
  Transmission Date: 20180509
  Serious: Yes (Other)
  Sender: FDA-Public Use
  Company Number: DE-AMGEN-DEUSP2018004448

PATIENT
  Age: 59 Year
  Sex: Female
  Weight: 96.3 kg

DRUGS (13)
  1. EZETROL [Concomitant]
     Active Substance: EZETIMIBE
     Dosage: 10 MG, QD
  2. REPATHA [Suspect]
     Active Substance: EVOLOCUMAB
     Indication: LOW DENSITY LIPOPROTEIN INCREASED
     Dosage: 140 MG, Q2WK
     Route: 058
     Dates: start: 20170720, end: 20171019
  3. PANTOPRA Q [Concomitant]
     Dosage: 40 MG, QD
  4. BISOPROLOL 1A PHARMA [Concomitant]
     Active Substance: BISOPROLOL
     Dosage: 10 MG, QD
  5. MICARDIS PLUS [Concomitant]
     Active Substance: HYDROCHLOROTHIAZIDE\TELMISARTAN
     Dosage: 1 DF (40/12.5 MG) , QD
  6. ATORVASTATIN 1 A PHARMA [Concomitant]
     Dosage: 40 MG, QD
  7. VICTOZA [Concomitant]
     Active Substance: LIRAGLUTIDE
     Dosage: 1.2 ML, QD
  8. PROTAPHAN [Concomitant]
     Dosage: 8 IU, QD
  9. AMLODIGAMMA TOP [Concomitant]
     Dosage: 10 MG, QD
  10. LIPROLOG [Concomitant]
     Active Substance: INSULIN LISPRO
     Dosage: 3 IU, QD
  11. METFORMIN 1A PHARMA [Concomitant]
     Active Substance: METFORMIN HYDROCHLORIDE
     Dosage: 1000 MG, QD
  12. CLOPIDOGREL [Concomitant]
     Active Substance: CLOPIDOGREL BISULFATE
     Dosage: 75 MG, QD
  13. MICARDIS [Concomitant]
     Active Substance: TELMISARTAN
     Dosage: 40 MG, QD

REACTIONS (2)
  - Peripheral swelling [Recovering/Resolving]
  - Diplegia [Recovering/Resolving]

NARRATIVE: CASE EVENT DATE: 2017
